FAERS Safety Report 6493014-1 (Version None)
Quarter: 2009Q4

REPORT INFORMATION
  Report Type: 
  Country: None (occurrence: None)
  Receive Date: 20091214
  Receipt Date: 20091203
  Transmission Date: 20100525
  Serious: Yes (Hospitalization)
  Sender: FDA-Public Use
  Company Number: IT-ASTRAZENECA-2009SE30367

PATIENT
  Age: 41 Year
  Sex: Female

DRUGS (7)
  1. MERREM [Suspect]
     Indication: ENCEPHALITIC INFECTION
     Route: 042
     Dates: start: 20091028, end: 20091120
  2. AURANTIN [Suspect]
     Indication: EPILEPSY
     Route: 042
     Dates: start: 20091101, end: 20091120
  3. VANCOMICINA HOSPIRA [Suspect]
     Indication: ENCEPHALITIC INFECTION
     Route: 042
     Dates: start: 20091114, end: 20091120
  4. DIFLUCAN [Suspect]
     Indication: FUNGAL SKIN INFECTION
     Route: 042
     Dates: start: 20091117, end: 20091120
  5. CLEXANE [Suspect]
     Indication: THROMBOSIS PROPHYLAXIS
     Route: 058
     Dates: start: 20091010, end: 20091127
  6. DEFLAMON [Suspect]
     Indication: ENCEPHALITIC INFECTION
     Route: 042
     Dates: start: 20091028, end: 20091120
  7. DESAMETASONE FOSFATO HOSPIRA [Concomitant]
     Indication: CEREBRAL OEDEMA MANAGEMENT
     Route: 042
     Dates: start: 20091010, end: 20091127

REACTIONS (1)
  - RASH MACULO-PAPULAR [None]
